FAERS Safety Report 5880068-6 (Version None)
Quarter: 2008Q3

REPORT INFORMATION
  Report Type: 
  Country: None (occurrence: None)
  Receive Date: 20080911
  Receipt Date: 20080911
  Transmission Date: 20090109
  Serious: Yes (Hospitalization, Other)
  Sender: FDA-Public Use
  Company Number: None

PATIENT
  Age: 31 Year
  Sex: Male

DRUGS (21)
  1. SOLIRIS [Suspect]
     Indication: PAROXYSMAL NOCTURNAL HAEMOGLOBINURIA
     Dosage: SEE IMAGE
     Route: 042
     Dates: start: 20070502, end: 20070502
  2. SOLIRIS [Suspect]
     Indication: PAROXYSMAL NOCTURNAL HAEMOGLOBINURIA
     Dosage: SEE IMAGE
     Route: 042
     Dates: start: 20070509, end: 20070509
  3. SOLIRIS [Suspect]
     Indication: PAROXYSMAL NOCTURNAL HAEMOGLOBINURIA
     Dosage: SEE IMAGE
     Route: 042
     Dates: start: 20070516, end: 20070516
  4. SOLIRIS [Suspect]
     Indication: PAROXYSMAL NOCTURNAL HAEMOGLOBINURIA
     Dosage: SEE IMAGE
     Route: 042
     Dates: start: 20070523, end: 20070523
  5. SOLIRIS [Suspect]
     Indication: PAROXYSMAL NOCTURNAL HAEMOGLOBINURIA
     Dosage: SEE IMAGE
     Route: 042
     Dates: start: 20070530, end: 20070530
  6. SOLIRIS [Suspect]
     Indication: PAROXYSMAL NOCTURNAL HAEMOGLOBINURIA
     Dosage: SEE IMAGE
     Route: 042
     Dates: start: 20070613, end: 20070613
  7. SOLIRIS [Suspect]
     Indication: PAROXYSMAL NOCTURNAL HAEMOGLOBINURIA
     Dosage: SEE IMAGE
     Route: 042
     Dates: start: 20070627, end: 20070627
  8. SOLIRIS [Suspect]
     Indication: PAROXYSMAL NOCTURNAL HAEMOGLOBINURIA
     Dosage: SEE IMAGE
     Route: 042
     Dates: start: 20070711, end: 20070711
  9. SOLIRIS [Suspect]
     Indication: PAROXYSMAL NOCTURNAL HAEMOGLOBINURIA
     Dosage: SEE IMAGE
     Route: 042
     Dates: start: 20070725, end: 20070725
  10. SOLIRIS [Suspect]
     Indication: PAROXYSMAL NOCTURNAL HAEMOGLOBINURIA
     Dosage: SEE IMAGE
     Route: 042
     Dates: start: 20070808, end: 20070808
  11. SOLIRIS [Suspect]
     Indication: PAROXYSMAL NOCTURNAL HAEMOGLOBINURIA
     Dosage: SEE IMAGE
     Route: 042
     Dates: start: 20070822, end: 20070822
  12. SOLIRIS [Suspect]
     Indication: PAROXYSMAL NOCTURNAL HAEMOGLOBINURIA
     Dosage: SEE IMAGE
     Route: 042
     Dates: start: 20070905, end: 20070905
  13. SOLIRIS [Suspect]
     Indication: PAROXYSMAL NOCTURNAL HAEMOGLOBINURIA
     Dosage: SEE IMAGE
     Route: 042
     Dates: start: 20070919, end: 20070919
  14. SOLIRIS [Suspect]
     Indication: PAROXYSMAL NOCTURNAL HAEMOGLOBINURIA
     Dosage: SEE IMAGE
     Route: 042
     Dates: start: 20070928, end: 20070928
  15. SOLIRIS [Suspect]
     Indication: PAROXYSMAL NOCTURNAL HAEMOGLOBINURIA
     Dosage: SEE IMAGE
     Route: 042
     Dates: start: 20071012, end: 20071012
  16. SOLIRIS [Suspect]
     Indication: PAROXYSMAL NOCTURNAL HAEMOGLOBINURIA
     Dosage: SEE IMAGE
     Route: 042
     Dates: start: 20071026, end: 20071026
  17. SOLIRIS [Suspect]
     Indication: PAROXYSMAL NOCTURNAL HAEMOGLOBINURIA
     Dosage: SEE IMAGE
     Route: 042
     Dates: start: 20071109, end: 20071109
  18. SOLIRIS [Suspect]
     Indication: PAROXYSMAL NOCTURNAL HAEMOGLOBINURIA
     Dosage: SEE IMAGE
     Route: 042
     Dates: start: 20071123, end: 20071123
  19. SOLIRIS [Suspect]
     Indication: PAROXYSMAL NOCTURNAL HAEMOGLOBINURIA
     Dosage: SEE IMAGE
     Route: 042
     Dates: start: 20071207, end: 20071207
  20. SOLIRIS [Suspect]
     Indication: PAROXYSMAL NOCTURNAL HAEMOGLOBINURIA
     Dosage: SEE IMAGE
     Route: 042
     Dates: start: 20071221, end: 20071221
  21. OXYGEN [Concomitant]

REACTIONS (4)
  - ARTHROPOD BITE [None]
  - INGROWN HAIR [None]
  - THERMAL BURN [None]
  - THROMBOSIS [None]
